FAERS Safety Report 5698370-X (Version None)
Quarter: 2008Q2

REPORT INFORMATION
  Report Type: 
  Country: None (occurrence: None)
  Receive Date: 20080403
  Receipt Date: 20080325
  Transmission Date: 20081010
  Serious: Yes (Hospitalization)
  Sender: FDA-Public Use
  Company Number: 2008-02035

PATIENT
  Age: 37 Year
  Sex: Male

DRUGS (1)
  1. MORPHINE SULFATE [Suspect]
     Indication: DRUG ABUSE
     Dosage: INTRAVENOUS
     Route: 042

REACTIONS (2)
  - MEDIASTINITIS [None]
  - SELF-MEDICATION [None]
